FAERS Safety Report 4270871-0 (Version None)
Quarter: 2004Q1

REPORT INFORMATION
  Report Type: 
  Country: None (occurrence: None)
  Receive Date: 20040113
  Receipt Date: 20040107
  Transmission Date: 20041129
  Serious: Yes (Other)
  Sender: FDA-Public Use
  Company Number: 2003190726CA

PATIENT
  Sex: Male

DRUGS (3)
  1. CAMPTOSAR [Suspect]
     Indication: COLORECTAL CANCER
     Dosage: CYCLIC, IV
     Route: 042
     Dates: start: 20030324, end: 20031101
  2. ADRUCIL [Suspect]
     Indication: COLORECTAL CANCER
     Dosage: CYCLIC, IV
     Route: 042
     Dates: start: 20030324, end: 20031101
  3. LEUCOVORIN CALCIUM [Suspect]
     Indication: COLORECTAL CANCER
     Dosage: CYCLIC, IV
     Route: 042
     Dates: start: 20030324, end: 20031101

REACTIONS (3)
  - CARCINOEMBRYONIC ANTIGEN INCREASED [None]
  - DRUG EFFECT DECREASED [None]
  - METASTASES TO LIVER [None]
